FAERS Safety Report 15678262 (Version 1)
Quarter: 2018Q4

REPORT INFORMATION
  Report Type: Spontaneous
  Country: DE (occurrence: DE)
  Receive Date: 20181201
  Receipt Date: 20181201
  Transmission Date: 20190205
  Serious: Yes (Hospitalization, Other)
  Sender: FDA-Public Use
  Company Number: DE-ACCORD-094097

PATIENT
  Age: 57 Year
  Sex: Male

DRUGS (10)
  1. TAMSULOSIN/TAMSULOSIN HYDROCHLORIDE [Concomitant]
     Dates: start: 20151030
  2. OLANZAPINE. [Interacting]
     Active Substance: OLANZAPINE
     Dates: start: 20151107, end: 20151113
  3. RISPERIDONE. [Concomitant]
     Active Substance: RISPERIDONE
     Dates: start: 200804
  4. OLANZAPINE. [Interacting]
     Active Substance: OLANZAPINE
     Dates: start: 201410, end: 20151030
  5. OLANZAPINE. [Interacting]
     Active Substance: OLANZAPINE
     Dates: start: 201401
  6. OLANZAPINE. [Interacting]
     Active Substance: OLANZAPINE
     Dates: start: 20151114, end: 20151124
  7. SERTRALINE [Suspect]
     Active Substance: SERTRALINE HYDROCHLORIDE
     Indication: PRODUCT USED FOR UNKNOWN INDICATION
     Dates: start: 201410
  8. RISPERIDONE. [Concomitant]
     Active Substance: RISPERIDONE
     Dates: start: 200804
  9. OLANZAPINE. [Interacting]
     Active Substance: OLANZAPINE
     Indication: PRODUCT USED FOR UNKNOWN INDICATION
     Dates: start: 201401
  10. OLANZAPINE. [Interacting]
     Active Substance: OLANZAPINE
     Dates: start: 20151125

REACTIONS (2)
  - Pollakiuria [Not Recovered/Not Resolved]
  - Drug interaction [Unknown]

NARRATIVE: CASE EVENT DATE: 20171029
